FAERS Safety Report 19445563 (Version 1)
Quarter: 2021Q2

REPORT INFORMATION
  Report Type: Spontaneous
  Country: US (occurrence: US)
  Receive Date: 20210622
  Receipt Date: 20210622
  Transmission Date: 20210717
  Serious: Yes (Life-Threatening)
  Sender: FDA-Public Use
  Company Number: US-ACS-002033

PATIENT
  Sex: Female
  Weight: 80.74 kg

DRUGS (1)
  1. CEFEPIME [Suspect]
     Active Substance: CEFEPIME HYDROCHLORIDE
     Indication: BACTERIAL INFECTION
     Dosage: 2GM IN 100ML NORMAL SALINE BY EASY PUMP
     Route: 042

REACTIONS (1)
  - Rash [Unknown]
